FAERS Safety Report 22330790 (Version 1)
Quarter: 2023Q2

REPORT INFORMATION
  Report Type: Spontaneous
  Country: US (occurrence: None)
  Receive Date: 20230515
  Receipt Date: 20230515
  Transmission Date: 20230722
  Serious: Yes (Hospitalization)
  Sender: FDA-Public Use
  Company Number: None

PATIENT
  Age: 7 Year
  Sex: Male
  Weight: 22.5 kg

DRUGS (1)
  1. CONCERTA [Suspect]
     Active Substance: METHYLPHENIDATE HYDROCHLORIDE
     Indication: Attention deficit hyperactivity disorder
     Dates: start: 20230511, end: 20230512

REACTIONS (11)
  - Staring [None]
  - Mydriasis [None]
  - Headache [None]
  - Migraine [None]
  - Pyrexia [None]
  - Photosensitivity reaction [None]
  - Muscular weakness [None]
  - Heart rate increased [None]
  - Product solubility abnormal [None]
  - Vomiting [None]
  - Product physical consistency issue [None]

NARRATIVE: CASE EVENT DATE: 20230513
